FAERS Safety Report 20454216 (Version 1)
Quarter: 2022Q1

REPORT INFORMATION
  Report Type: Spontaneous
  Country: US (occurrence: None)
  Receive Date: 20220209
  Receipt Date: 20220209
  Transmission Date: 20220423
  Serious: No
  Sender: FDA-Public Use
  Company Number: None

PATIENT
  Age: 61 Year
  Sex: Female

DRUGS (1)
  1. OPSUMIT [Suspect]
     Active Substance: MACITENTAN
     Indication: Pulmonary arterial hypertension
     Dosage: 10MG ONCE DAILY BY MOUTH
     Route: 048
     Dates: start: 20220203, end: 20220208

REACTIONS (4)
  - Hypersensitivity [None]
  - Swelling of eyelid [None]
  - Eyelids pruritus [None]
  - Therapy cessation [None]

NARRATIVE: CASE EVENT DATE: 20220201
